FAERS Safety Report 4394784-9 (Version None)
Quarter: 2004Q2

REPORT INFORMATION
  Report Type: 
  Country: None (occurrence: None)
  Receive Date: 20040621
  Receipt Date: 20031024
  Transmission Date: 20050107
  Serious: Yes (Hospitalization, Other)
  Sender: FDA-Public Use
  Company Number: USA-2003-0010584

PATIENT
  Age: 31 Year
  Sex: Male
  Weight: 90.7 kg

DRUGS (9)
  1. OXYCONTIN [Suspect]
     Indication: PAIN
  2. CLONIDINE HCL [Concomitant]
  3. REMERON [Concomitant]
  4. HUMULIN [Concomitant]
  5. REGULAR INSULIN [Concomitant]
  6. GLUCOTROL [Concomitant]
  7. NEURONTIN [Concomitant]
  8. KEFLEX [Concomitant]
  9. MUCO-FEN-DM [Concomitant]

REACTIONS (18)
  - BODY TEMPERATURE INCREASED [None]
  - COUGH [None]
  - DEPRESSION [None]
  - DIPLOPIA [None]
  - DRUG ABUSER [None]
  - DRUG DEPENDENCE [None]
  - DRUG WITHDRAWAL SYNDROME [None]
  - DYSURIA [None]
  - EMOTIONAL DISTRESS [None]
  - ERYTHEMA [None]
  - HALLUCINATION, AUDITORY [None]
  - HYPOAESTHESIA [None]
  - LYMPHADENOPATHY [None]
  - MUSCLE TWITCHING [None]
  - NASAL CONGESTION [None]
  - PAIN [None]
  - SUICIDAL IDEATION [None]
  - TESTICULAR DISORDER [None]
